FAERS Safety Report 8573874-0 (Version None)
Quarter: 2012Q3

REPORT INFORMATION
  Report Type: 
  Country: None (occurrence: None)
  Receive Date: 20120806
  Receipt Date: 20120210
  Transmission Date: 20120928
  Serious: No
  Sender: FDA-Public Use
  Company Number: US-GLAXOSMITHKLINE-A0966744A

PATIENT
  Sex: Female

DRUGS (1)
  1. FLUTICASONE PROPIONATE [Suspect]
     Indication: EMPHYSEMA
     Route: 055
     Dates: start: 20120113, end: 20120101

REACTIONS (7)
  - OROPHARYNGEAL PAIN [None]
  - STOMATITIS [None]
  - PARAESTHESIA ORAL [None]
  - NASAL DISCOMFORT [None]
  - NASOPHARYNGITIS [None]
  - MOUTH INJURY [None]
  - TONGUE HAEMORRHAGE [None]
